FAERS Safety Report 7641041-0 (Version None)
Quarter: 2011Q3

REPORT INFORMATION
  Report Type: 
  Country: None (occurrence: None)
  Receive Date: 20110728
  Receipt Date: 20110720
  Transmission Date: 20111222
  Serious: Yes (Other)
  Sender: FDA-Public Use
  Company Number: ES-ASTELLAS-2011US004107

PATIENT
  Sex: Male
  Weight: 37 kg

DRUGS (5)
  1. AMBISOME [Suspect]
     Indication: OESOPHAGEAL CANDIDIASIS
  2. TRIMETHOPRIM + SULFAMETHOXAZOLE [Concomitant]
     Indication: PROPHYLAXIS
     Dosage: 5 MG/KG, UNKNOWN/D
     Route: 048
     Dates: start: 20110718, end: 20110720
  3. AMBISOME [Suspect]
     Indication: ORAL CANDIDIASIS
     Dosage: 3 MG/KG, UID/QD
     Route: 042
     Dates: start: 20110718, end: 20110718
  4. MEROPENEM [Concomitant]
     Indication: NEUTROPENIA
     Dosage: 60 MG/KG, UNKNOWN/D
     Route: 042
     Dates: start: 20110715, end: 20110720
  5. METAMIZOL [Concomitant]
     Indication: PAIN
     Dosage: 40 MG/KG, UNKNOWN/D
     Route: 042
     Dates: start: 20110715, end: 20110720

REACTIONS (2)
  - ASPHYXIA [None]
  - HYPOXIA [None]
